FAERS Safety Report 21097968 (Version 1)
Quarter: 2022Q3

REPORT INFORMATION
  Report Type: Spontaneous
  Country: US (occurrence: US)
  Receive Date: 20220719
  Receipt Date: 20220719
  Transmission Date: 20221026
  Serious: Yes (Other)
  Sender: FDA-Public Use
  Company Number: US-SA-SAC20220714001759

PATIENT
  Age: 66 Year
  Sex: Male

DRUGS (3)
  1. ZANTAC [Suspect]
     Active Substance: RANITIDINE HYDROCHLORIDE
     Indication: Gastrooesophageal reflux disease
     Dosage: 150MG, BID
     Route: 048
     Dates: start: 198306, end: 1992
  2. RANITIDINE [Suspect]
     Active Substance: RANITIDINE
     Indication: Gastrooesophageal reflux disease
     Dosage: 150 MG, BID
     Dates: start: 1992, end: 2008
  3. TESTOSTERONE [Concomitant]
     Active Substance: TESTOSTERONE
     Indication: Hormone replacement therapy
     Dosage: UNK
     Dates: start: 20210612

REACTIONS (4)
  - Squamous cell carcinoma [Unknown]
  - Bladder cancer [Unknown]
  - Squamous cell carcinoma of skin [Unknown]
  - Prostate cancer [Unknown]

NARRATIVE: CASE EVENT DATE: 20080101
